FAERS Safety Report 9003869 (Version 1)
Quarter: 2013Q1

REPORT INFORMATION
  Report Type: Spontaneous
  Country: US (occurrence: US)
  Receive Date: 20130108
  Receipt Date: 20130108
  Transmission Date: 20140127
  Serious: No
  Sender: FDA-Public Use
  Company Number: US-GLAXOSMITHKLINE-A0998572A

PATIENT
  Sex: Female

DRUGS (12)
  1. LOVAZA [Suspect]
     Indication: HIGH DENSITY LIPOPROTEIN DECREASED
     Dosage: 2CAP PER DAY
     Route: 048
     Dates: start: 20121022
  2. LOTREL [Concomitant]
  3. COREG [Concomitant]
  4. GLIMEPIRIDE [Concomitant]
  5. LIPITOR [Concomitant]
  6. PLAVIX [Concomitant]
  7. ASPIRIN [Concomitant]
  8. VITAMIN D2 [Concomitant]
  9. LATANOPROST [Concomitant]
  10. MULTIVITAMIN [Concomitant]
  11. IRON SUPPLEMENT [Concomitant]
  12. INFLUENZA SHOT [Concomitant]

REACTIONS (1)
  - Diarrhoea [Recovered/Resolved]
